FAERS Safety Report 8774585 (Version 2)
Quarter: 2013Q4

REPORT INFORMATION
  Report Type: Spontaneous
  Country: DE (occurrence: DE)
  Receive Date: 20120907
  Receipt Date: 20131031
  Transmission Date: 20140711
  Serious: Yes (Other)
  Sender: FDA-Public Use
  Company Number: DE-009507513-1209DEU000864

PATIENT
  Sex: Female
  Weight: 52 kg

DRUGS (6)
  1. TREDAPTIVE [Suspect]
     Indication: PRODUCT USED FOR UNKNOWN INDICATION
     Dosage: 1000 MG, UNK
  2. FLUVASTATIN SODIUM [Suspect]
     Dosage: 20 DF, UNK
     Dates: start: 201206
  3. ZOCOR 10MG [Suspect]
     Indication: PRODUCT USED FOR UNKNOWN INDICATION
     Dosage: 5 DF, UNK
     Route: 048
     Dates: start: 201104, end: 201108
  4. PRAVASTATIN SODIUM [Suspect]
     Dosage: 10 DF, UNK
  5. CHOLESTAGEL [Suspect]
     Dosage: 4 DF, UNK
     Dates: start: 201202, end: 2012
  6. SORTIS [Suspect]
     Dosage: 10 DF, UNK
     Dates: start: 2011, end: 2011

REACTIONS (5)
  - Myalgia [Recovered/Resolved]
  - Rash [Recovered/Resolved]
  - Angioedema [Recovered/Resolved]
  - Cognitive disorder [Recovered/Resolved]
  - Constipation [Recovered/Resolved]
